FAERS Safety Report 14298546 (Version 4)
Quarter: 2018Q3

REPORT INFORMATION
  Report Type: Report from Study
  Country: None (occurrence: DE)
  Receive Date: 20171218
  Receipt Date: 20180809
  Transmission Date: 20181010
  Serious: Yes (Hospitalization)
  Sender: FDA-Public Use
  Company Number: DE-ABBVIE-17P-062-2185611-00

PATIENT
  Age: 13 Year
  Sex: Male
  Weight: 38 kg

DRUGS (21)
  1. METHOTREXATE. [Suspect]
     Active Substance: METHOTREXATE
     Indication: CROHN^S DISEASE
     Route: 048
     Dates: start: 20160312, end: 20160316
  2. FOLIC ACID. [Concomitant]
     Active Substance: FOLIC ACID
     Indication: CROHN^S DISEASE
     Route: 048
     Dates: start: 20160630
  3. HUMIRA [Suspect]
     Active Substance: ADALIMUMAB
     Indication: CROHN^S DISEASE
     Route: 058
     Dates: start: 201506, end: 20160509
  4. ACETYLSALICYLS?URE [Concomitant]
     Active Substance: ASPIRIN
     Indication: CROHN^S DISEASE
     Route: 048
     Dates: start: 20170628
  5. HUMIRA [Suspect]
     Active Substance: ADALIMUMAB
     Dosage: MAXIMUM TWICE A WEEK, TUESDAY AND SATURDAY
     Route: 058
     Dates: start: 20160510, end: 20160615
  6. TRIMETHOPRIM. [Concomitant]
     Active Substance: TRIMETHOPRIM
     Indication: CROHN^S DISEASE
     Dosage: MORNING AND EVENING
     Route: 048
     Dates: start: 20160316, end: 20160408
  7. SOLU?DECORTIN [Concomitant]
     Active Substance: PREDNISOLONE SODIUM SUCCINATE
     Indication: CROHN^S DISEASE
     Route: 048
     Dates: start: 20160630, end: 201612
  8. PREDNISOLON [Concomitant]
     Active Substance: PREDNISOLONE
     Indication: CROHN^S DISEASE
     Route: 048
     Dates: start: 201703, end: 20170402
  9. OMEPRAZOL [Concomitant]
     Active Substance: OMEPRAZOLE
     Route: 048
     Dates: start: 2016, end: 201704
  10. MESALAZIN?SALOFALK [Concomitant]
     Route: 048
     Dates: start: 20160511, end: 20160629
  11. VITAMIN D [Concomitant]
     Active Substance: CHOLECALCIFEROL
     Indication: PROPHYLAXIS
     Dosage: I.E
     Route: 048
     Dates: start: 2016
  12. MESALAZIN?SALOFALK [Concomitant]
     Indication: CROHN^S DISEASE
     Route: 048
     Dates: start: 20120416, end: 20160510
  13. MESALAZIN?SALOFALK [Concomitant]
     Route: 048
     Dates: start: 20160630
  14. SANDIMMUN?OPTORAL [Concomitant]
     Active Substance: CYCLOSPORINE
     Indication: CROHN^S DISEASE
     Route: 048
     Dates: start: 20160216, end: 20160412
  15. METHOTREXATE. [Suspect]
     Active Substance: METHOTREXATE
     Dosage: EVERY WEEK FRIDAY
     Route: 048
     Dates: start: 20160405
  16. ACETYLSALICYLS?URE [Concomitant]
     Active Substance: ASPIRIN
     Indication: CROHN^S DISEASE
     Route: 048
     Dates: start: 20170628, end: 20171204
  17. ONDANSETRON [Concomitant]
     Active Substance: ONDANSETRON
     Indication: CROHN^S DISEASE
     Route: 048
     Dates: start: 2017
  18. OMEPRAZOL [Concomitant]
     Active Substance: OMEPRAZOLE
     Indication: CROHN^S DISEASE
     Route: 048
     Dates: start: 20160320, end: 20160629
  19. MUTAFLOR [Concomitant]
     Active Substance: ESCHERICHIA COLI
     Indication: CROHN^S DISEASE
     Route: 048
     Dates: start: 20160510, end: 20161101
  20. VEDOLIZUMAB [Concomitant]
     Active Substance: VEDOLIZUMAB
     Indication: CROHN^S DISEASE
     Dosage: EVERY 4?6 WEEKS
     Route: 042
     Dates: start: 20160616
  21. PREDNISOLON [Concomitant]
     Active Substance: PREDNISOLONE
     Dosage: 2,5 MG
     Route: 048
     Dates: start: 20170402, end: 20170406

REACTIONS (2)
  - Thoracic vertebral fracture [Recovered/Resolved]
  - Fall [Recovered/Resolved]

NARRATIVE: CASE EVENT DATE: 20171204
